FAERS Safety Report 11630599 (Version 5)
Quarter: 2017Q2

REPORT INFORMATION
  Report Type: Report from Study
  Country: US (occurrence: US)
  Receive Date: 20151014
  Receipt Date: 20170530
  Transmission Date: 20170829
  Serious: No
  Sender: FDA-Public Use
  Company Number: PHEH2015US020353

PATIENT
  Sex: Male

DRUGS (1)
  1. COSENTYX [Suspect]
     Active Substance: SECUKINUMAB
     Indication: PSORIASIS
     Dosage: 300 MG, QMO
     Route: 058
     Dates: start: 20150402

REACTIONS (6)
  - Drug effect delayed [Unknown]
  - Influenza [Recovered/Resolved]
  - Gout [Unknown]
  - Hypersensitivity [Unknown]
  - Psoriasis [Unknown]
  - Rash [Unknown]
